FAERS Safety Report 6874047-X (Version None)
Quarter: 2010Q3

REPORT INFORMATION
  Report Type: 
  Country: None (occurrence: None)
  Receive Date: 20100723
  Receipt Date: 20090422
  Transmission Date: 20110219
  Serious: No
  Sender: FDA-Public Use
  Company Number: US-PFIZER INC-2009206324

PATIENT
  Age: 39 Year
  Sex: Female
  Weight: 52.1 kg

DRUGS (6)
  1. CHANTIX [Suspect]
     Indication: SMOKING CESSATION THERAPY
     Dosage: 1 MG, 2X/DAY
     Dates: start: 20090401
  2. ESTRADIOL [Concomitant]
     Dosage: UNK
  3. SYSTANE [Concomitant]
     Dosage: UNK
  4. GENTEAL [Concomitant]
     Dosage: UNK
  5. HYDROCODONE [Concomitant]
     Dosage: UNK
  6. ATIVAN [Concomitant]
     Dosage: UNK

REACTIONS (1)
  - FATIGUE [None]
